FAERS Safety Report 4980856-4 (Version None)
Quarter: 2006Q2

REPORT INFORMATION
  Report Type: 
  Country: None (occurrence: None)
  Receive Date: 20060424
  Receipt Date: 20051219
  Transmission Date: 20061013
  Serious: Yes (Death, Hospitalization, Disabling, Other)
  Sender: FDA-Public Use
  Company Number: US-MERCK-0512USA02782

PATIENT
  Age: 71 Year
  Sex: Male
  Weight: 92 kg

DRUGS (4)
  1. VIOXX [Suspect]
     Indication: ARTHRITIS
     Route: 048
     Dates: start: 20020115, end: 20040805
  2. LIBRIUM [Concomitant]
     Indication: NERVOUSNESS
     Route: 065
     Dates: start: 20011116, end: 20050805
  3. HYDROCODONE BITARTRATE + ACETAMINOPHEN [Concomitant]
     Indication: ARTHRALGIA
     Route: 065
  4. CLARITIN-D [Concomitant]
     Indication: SINUSITIS
     Route: 065

REACTIONS (10)
  - ACUTE MYOCARDIAL INFARCTION [None]
  - ARTERIAL OCCLUSIVE DISEASE [None]
  - BACK PAIN [None]
  - CARDIAC ARREST [None]
  - CHEST PAIN [None]
  - CORONARY ARTERY DISEASE [None]
  - CORONARY ARTERY STENOSIS [None]
  - MYOCARDIAL RUPTURE [None]
  - PERICARDIAL EFFUSION [None]
  - VENTRICULAR FIBRILLATION [None]
